FAERS Safety Report 24640338 (Version 2)
Quarter: 2024Q4

REPORT INFORMATION
  Report Type: Spontaneous
  Country: JP (occurrence: JP)
  Receive Date: 20241120
  Receipt Date: 20241213
  Transmission Date: 20250115
  Serious: Yes (Death, Other)
  Sender: ALEXION PHARMACEUTICALS
  Company Number: JP-ASTRAZENECA-240126010_013120_P_1

PATIENT
  Age: 81 Year

DRUGS (20)
  1. DURVALUMAB [Suspect]
     Active Substance: DURVALUMAB
  2. DURVALUMAB [Suspect]
     Active Substance: DURVALUMAB
     Route: 041
  3. DURVALUMAB [Suspect]
     Active Substance: DURVALUMAB
  4. DURVALUMAB [Suspect]
     Active Substance: DURVALUMAB
     Route: 041
  5. GEMCITABINE HYDROCHLORIDE [Concomitant]
     Active Substance: GEMCITABINE HYDROCHLORIDE
     Indication: Bile duct cancer
     Dosage: DOSE UNKNOWN
     Route: 065
  6. GEMCITABINE HYDROCHLORIDE [Concomitant]
     Active Substance: GEMCITABINE HYDROCHLORIDE
     Dosage: DOSE UNKNOWN
     Route: 065
  7. CISPLATIN [Concomitant]
     Active Substance: CISPLATIN
     Indication: Bile duct cancer
     Dosage: DOSE UNKNOWN
     Route: 065
  8. CISPLATIN [Concomitant]
     Active Substance: CISPLATIN
     Dosage: DOSE UNKNOWN
     Route: 065
  9. GLICLAZIDE [Concomitant]
     Active Substance: GLICLAZIDE
     Dosage: DOSE UNKNOWN
     Route: 065
  10. GLICLAZIDE [Concomitant]
     Active Substance: GLICLAZIDE
     Dosage: DOSE UNKNOWN
     Route: 065
  11. LINAGLIPTIN [Concomitant]
     Active Substance: LINAGLIPTIN
     Dosage: DOSE UNKNOWN
     Route: 065
  12. LINAGLIPTIN [Concomitant]
     Active Substance: LINAGLIPTIN
     Dosage: DOSE UNKNOWN
     Route: 065
  13. METFORMIN HYDROCHLORIDE [Concomitant]
     Active Substance: METFORMIN HYDROCHLORIDE
     Dosage: DOSE UNKNOWN
     Route: 065
  14. METFORMIN HYDROCHLORIDE [Concomitant]
     Active Substance: METFORMIN HYDROCHLORIDE
     Dosage: DOSE UNKNOWN
     Route: 065
  15. TAMSULOSIN HYDROCHLORIDE [Concomitant]
     Active Substance: TAMSULOSIN HYDROCHLORIDE
     Dosage: DOSE UNKNOWN
     Route: 065
  16. TAMSULOSIN HYDROCHLORIDE [Concomitant]
     Active Substance: TAMSULOSIN HYDROCHLORIDE
     Dosage: DOSE UNKNOWN
     Route: 065
  17. VALSARTAN [Concomitant]
     Active Substance: VALSARTAN
     Dosage: DOSE UNKNOWN
     Route: 065
  18. VALSARTAN [Concomitant]
     Active Substance: VALSARTAN
     Dosage: DOSE UNKNOWN
     Route: 065
  19. ATORVASTATIN [Concomitant]
     Active Substance: ATORVASTATIN
     Dosage: DOSE UNKNOWN
     Route: 065
  20. ATORVASTATIN [Concomitant]
     Active Substance: ATORVASTATIN
     Dosage: DOSE UNKNOWN
     Route: 065

REACTIONS (3)
  - Death [Fatal]
  - Ascites [Unknown]
  - Nausea [Unknown]
